FAERS Safety Report 11342760 (Version 1)
Quarter: 2015Q3

REPORT INFORMATION
  Report Type: Spontaneous
  Country: IR (occurrence: IR)
  Receive Date: 20150805
  Receipt Date: 20150805
  Transmission Date: 20151125
  Serious: Yes (Other)
  Sender: FDA-Public Use
  Company Number: PHHY2015IR091485

PATIENT
  Sex: Male

DRUGS (1)
  1. METHADONE [Suspect]
     Active Substance: METHADONE HYDROCHLORIDE
     Indication: PRODUCT USED FOR UNKNOWN INDICATION
     Dosage: 17 CC
     Route: 065

REACTIONS (5)
  - Spontaneous penile erection [Recovered/Resolved]
  - Libido increased [Recovered/Resolved]
  - Painful erection [Recovered/Resolved]
  - Priapism [Recovered/Resolved]
  - Withdrawal syndrome [Recovered/Resolved]
